FAERS Safety Report 23159806 (Version 1)
Quarter: 2023Q4

REPORT INFORMATION
  Report Type: Spontaneous
  Country: FR (occurrence: FR)
  Receive Date: 20231108
  Receipt Date: 20231108
  Transmission Date: 20240110
  Serious: Yes (Hospitalization, Other)
  Sender: FDA-Public Use
  Company Number: FR-002147023-NVSC2023FR236176

PATIENT

DRUGS (2)
  1. RUXOLITINIB [Suspect]
     Active Substance: RUXOLITINIB
     Indication: Polycythaemia vera
     Dosage: 5 MG, BID
     Route: 065
     Dates: start: 2015
  2. RUXOLITINIB [Suspect]
     Active Substance: RUXOLITINIB
     Dosage: 15 MG, BID
     Route: 065

REACTIONS (16)
  - Apathy [Unknown]
  - Aphasia [Recovering/Resolving]
  - Arthralgia [Unknown]
  - Dizziness [Unknown]
  - Deafness unilateral [Unknown]
  - Fatigue [Unknown]
  - Affect lability [Unknown]
  - Irritability [Unknown]
  - Meningitis herpes [Unknown]
  - Petit mal epilepsy [Unknown]
  - Myoclonic epilepsy [Unknown]
  - Phobia [Unknown]
  - Lung disorder [Unknown]
  - Memory impairment [Unknown]
  - Sleep disorder [Unknown]
  - Pyrexia [Unknown]

NARRATIVE: CASE EVENT DATE: 20190911
